FAERS Safety Report 24046395 (Version 1)
Quarter: 2024Q3

REPORT INFORMATION
  Report Type: Other
  Country: DE (occurrence: DE)
  Receive Date: 20240703
  Receipt Date: 20240703
  Transmission Date: 20241017
  Serious: Yes (Life-Threatening, Other)
  Sender: PHOTOCURE
  Company Number: DE-PHOTOCURE ASA-PHCDE2024000006

PATIENT
  Age: 71 Year
  Sex: Male
  Weight: 87 kg

DRUGS (1)
  1. HEXAMINOLEVULINATE HYDROCHLORIDE [Suspect]
     Active Substance: HEXAMINOLEVULINATE HYDROCHLORIDE
     Indication: Transurethral bladder resection
     Dosage: 85 MG, TOTAL, GEGEBEN UM 10:00
     Route: 043
     Dates: start: 20240524

REACTIONS (6)
  - Hypotension [Recovered/Resolved]
  - Conjunctival hyperaemia [Recovered/Resolved]
  - Dermatitis exfoliative generalised [Recovered/Resolved]
  - Agitation [Recovered/Resolved]
  - Tachycardia [Recovered/Resolved]
  - Anaphylactic shock [Recovered/Resolved]

NARRATIVE: CASE EVENT DATE: 20240524
